FAERS Safety Report 24445847 (Version 1)
Quarter: 2024Q4

REPORT INFORMATION
  Report Type: Spontaneous
  Country: US (occurrence: US)
  Receive Date: 20241016
  Receipt Date: 20241016
  Transmission Date: 20250115
  Serious: No
  Sender: KARYOPHARM THERAPEUTICS
  Company Number: US-KARYOPHARM-2024KPT001660

PATIENT

DRUGS (6)
  1. XPOVIO [Suspect]
     Active Substance: SELINEXOR
     Indication: Plasma cell myeloma refractory
     Dosage: 60 MG, WEEKLY
     Route: 048
     Dates: start: 20240327
  2. ASPIRIN [Concomitant]
     Active Substance: ASPIRIN
  3. ONDANSETRON [Concomitant]
     Active Substance: ONDANSETRON
  4. DEXAMETHASONE [Concomitant]
     Active Substance: DEXAMETHASONE
  5. OLANZAPINE [Concomitant]
     Active Substance: OLANZAPINE
  6. VELCADE [Concomitant]
     Active Substance: BORTEZOMIB

REACTIONS (2)
  - Insomnia [Unknown]
  - Urticaria [Unknown]

NARRATIVE: CASE EVENT DATE: 20240101
